FAERS Safety Report 13505486 (Version 1)
Quarter: 2017Q2

REPORT INFORMATION
  Report Type: Spontaneous
  Country: US (occurrence: US)
  Receive Date: 20170502
  Receipt Date: 20170502
  Transmission Date: 20170830
  Serious: No
  Sender: FDA-Public Use
  Company Number: US-ASTRAZENECA-2017SE42589

PATIENT
  Age: 17282 Day
  Sex: Male
  Weight: 99.8 kg

DRUGS (3)
  1. MOVANTIK [Suspect]
     Active Substance: NALOXEGOL OXALATE
     Indication: CONSTIPATION
     Dosage: 25.0MG AS REQUIRED
     Route: 048
     Dates: start: 201602
  2. MORPHINE [Concomitant]
     Active Substance: MORPHINE
     Indication: PAIN
     Route: 048
     Dates: start: 201508
  3. PERCOGESIC OTC [Concomitant]
     Indication: PAIN
     Route: 048
     Dates: start: 20170406

REACTIONS (4)
  - Mobility decreased [Not Recovered/Not Resolved]
  - Drug screen positive [Unknown]
  - Pain [Not Recovered/Not Resolved]
  - Off label use [Unknown]

NARRATIVE: CASE EVENT DATE: 20170406
